FAERS Safety Report 5412208-7 (Version None)
Quarter: 2007Q3

REPORT INFORMATION
  Report Type: 
  Country: None (occurrence: None)
  Receive Date: 20070809
  Receipt Date: 20070723
  Transmission Date: 20080115
  Serious: Yes (Hospitalization)
  Sender: FDA-Public Use
  Company Number: JPI-P-001749

PATIENT
  Age: 28 Year
  Sex: Female

DRUGS (4)
  1. XYREM [Suspect]
     Indication: FIBROMYALGIA
     Dosage: 4.5 GM (2.25 GM, 2 IN 1 D), ORAL, 4 GM (2 GM, 2 IN 1 D), ORAL
     Route: 048
     Dates: start: 20070522, end: 20070701
  2. XYREM [Suspect]
     Indication: SOMNOLENCE
     Dosage: 4.5 GM (2.25 GM, 2 IN 1 D), ORAL, 4 GM (2 GM, 2 IN 1 D), ORAL
     Route: 048
     Dates: start: 20070522, end: 20070701
  3. XYREM [Suspect]
     Indication: FIBROMYALGIA
     Dosage: 4.5 GM (2.25 GM, 2 IN 1 D), ORAL, 4 GM (2 GM, 2 IN 1 D), ORAL
     Route: 048
     Dates: start: 20070723
  4. XYREM [Suspect]
     Indication: SOMNOLENCE
     Dosage: 4.5 GM (2.25 GM, 2 IN 1 D), ORAL, 4 GM (2 GM, 2 IN 1 D), ORAL
     Route: 048
     Dates: start: 20070723

REACTIONS (4)
  - DEHYDRATION [None]
  - NAUSEA [None]
  - VOMITING [None]
  - WEIGHT DECREASED [None]
